FAERS Safety Report 23405131 (Version 2)
Quarter: 2024Q1

REPORT INFORMATION
  Report Type: Spontaneous
  Country: DK (occurrence: DK)
  Receive Date: 20240116
  Receipt Date: 20240327
  Transmission Date: 20240410
  Serious: Yes (Other)
  Sender: FDA-Public Use
  Company Number: DK-BEH-2024167410

PATIENT
  Age: 15 Year
  Sex: Male

DRUGS (3)
  1. ALBUMIN HUMAN [Suspect]
     Active Substance: ALBUMIN HUMAN
     Indication: Product used for unknown indication
     Route: 065
  2. ALBUMIN HUMAN [Suspect]
     Active Substance: ALBUMIN HUMAN
     Indication: Skin test
     Route: 061
  3. ALBUMIN HUMAN [Suspect]
     Active Substance: ALBUMIN HUMAN
     Indication: Skin test
     Dosage: UNK
     Route: 023

REACTIONS (7)
  - Type I hypersensitivity [Unknown]
  - Hypotension [Unknown]
  - Bronchospasm [Unknown]
  - No adverse event [Unknown]
  - Off label use [Unknown]
  - Skin test positive [Unknown]
  - Histamine level increased [Unknown]
